FAERS Safety Report 6638126-4 (Version None)
Quarter: 2010Q1

REPORT INFORMATION
  Report Type: 
  Country: None (occurrence: None)
  Receive Date: 20100315
  Receipt Date: 20100315
  Transmission Date: 20100710
  Serious: No
  Sender: FDA-Public Use
  Company Number: None

PATIENT

DRUGS (9)
  1. LISINOPRIL [Suspect]
     Indication: HYPERTENSION
  2. COLCHICINE [Concomitant]
  3. ACETAMINOPHEN AND HYDROCODONE BITARTRATE [Concomitant]
  4. AMLODIPINE [Concomitant]
  5. PREDNISONE [Concomitant]
  6. ATENOLOL [Concomitant]
  7. INDOMETHACIN [Concomitant]
  8. ALLOPURINOL [Concomitant]
  9. ACETAMNPHN W.COD [Concomitant]

REACTIONS (1)
  - ANGIOEDEMA [None]
